FAERS Safety Report 8888762 (Version 1)
Quarter: 2012Q4

REPORT INFORMATION
  Report Type: 
  Country: DE (occurrence: DE)
  Receive Date: 20121106
  Receipt Date: 20121106
  Transmission Date: 20130627
  Serious: Yes (Life-Threatening, Hospitalization, Other)
  Sender: FDA-Public Use
  Company Number: DE-B.I. PHARMACEUTICALS,INC./RIDGEFIELD-2012-DE-01343DE

PATIENT
  Age: 70 Year
  Sex: Male

DRUGS (1)
  1. PRADAXA [Suspect]
     Indication: MITRAL VALVE REPLACEMENT
     Dosage: 300 mg
     Route: 048

REACTIONS (6)
  - Upper gastrointestinal haemorrhage [Not Recovered/Not Resolved]
  - Renal failure acute [Unknown]
  - Coagulopathy [Unknown]
  - Shock haemorrhagic [Unknown]
  - Haematemesis [Unknown]
  - Melaena [Unknown]
